FAERS Safety Report 8520735-9 (Version None)
Quarter: 2012Q3

REPORT INFORMATION
  Report Type: 
  Country: None (occurrence: None)
  Receive Date: 20120705
  Receipt Date: 20120620
  Transmission Date: 20120928
  Serious: Yes (Hospitalization)
  Sender: FDA-Public Use
  Company Number: DSJ-2012-05570

PATIENT
  Age: 6 Decade
  Sex: Male

DRUGS (5)
  1. VILDAGLIPTIN /METFORMIN [Concomitant]
  2. GEMFIBROZIL [Concomitant]
  3. METFFORMIN HYDROCHLORIDE [Concomitant]
  4. BENICAR [Suspect]
     Indication: HYPERTENSION
     Dosage: 20;40 MG (20 MG, 1 IN 1 D) PER ORAL
     Route: 048
     Dates: start: 20120301
  5. BENICAR [Suspect]
     Indication: HYPERTENSION
     Dosage: 20;40 MG (20 MG, 1 IN 1 D) PER ORAL
     Route: 048
     Dates: start: 20100101, end: 20120301

REACTIONS (3)
  - THYROID NEOPLASM [None]
  - DRUG INEFFECTIVE [None]
  - HYPERTRIGLYCERIDAEMIA [None]
